FAERS Safety Report 6013993-6 (Version None)
Quarter: 2008Q4

REPORT INFORMATION
  Report Type: 
  Country: None (occurrence: None)
  Receive Date: 20081216
  Receipt Date: 20080603
  Transmission Date: 20090506
  Serious: Yes (Hospitalization)
  Sender: FDA-Public Use
  Company Number: US-WYE-H04366408

PATIENT
  Age: 76 Year
  Sex: Male

DRUGS (13)
  1. EFFEXOR XR [Suspect]
     Indication: DEPRESSION
     Dosage: 3.75 MG 1X PER 1 DAY, ORAL : 75 MG 1X PER 1 DAY, ORAL : 1 DOSE EVERY OTHER DAY
     Route: 048
     Dates: start: 20080505, end: 20080511
  2. EFFEXOR XR [Suspect]
     Indication: DEPRESSION
     Dosage: 3.75 MG 1X PER 1 DAY, ORAL : 75 MG 1X PER 1 DAY, ORAL : 1 DOSE EVERY OTHER DAY
     Route: 048
     Dates: start: 20080512, end: 20080515
  3. EFFEXOR XR [Suspect]
     Indication: DEPRESSION
     Dosage: 3.75 MG 1X PER 1 DAY, ORAL : 75 MG 1X PER 1 DAY, ORAL : 1 DOSE EVERY OTHER DAY
     Route: 048
     Dates: start: 20080516
  4. AVODART [Suspect]
     Dosage: 0.5 MG 1X PER 1 DAY, ORAL
     Route: 048
     Dates: start: 20080101
  5. CARBOPLATIN [Suspect]
     Indication: LUNG NEOPLASM MALIGNANT
     Dates: start: 20080301, end: 20080301
  6. CISPLATIN [Suspect]
     Indication: LUNG NEOPLASM MALIGNANT
  7. DOCETAXEL [Suspect]
     Indication: LUNG NEOPLASM MALIGNANT
  8. ETOPOSIDE [Suspect]
     Indication: LUNG NEOPLASM MALIGNANT
     Dates: start: 20080101, end: 20080101
  9. METFORMIN HCL [Concomitant]
  10. ALLOPURINOL [Concomitant]
  11. OXYCODONE HCL [Concomitant]
  12. AMBIEN [Concomitant]
  13. ZANTAC 150 [Concomitant]

REACTIONS (3)
  - DYSKINESIA [None]
  - GAIT DISTURBANCE [None]
  - PAIN IN EXTREMITY [None]
